FAERS Safety Report 7688831-6 (Version None)
Quarter: 2011Q3

REPORT INFORMATION
  Report Type: 
  Country: None (occurrence: None)
  Receive Date: 20110817
  Receipt Date: 20110805
  Transmission Date: 20111222
  Serious: Yes (Hospitalization)
  Sender: FDA-Public Use
  Company Number: PHHY2011FR71101

PATIENT
  Sex: Male

DRUGS (7)
  1. VIDAZA [Concomitant]
     Dates: start: 20110530, end: 20110603
  2. DESFERAL [Suspect]
     Dosage: 3 G, QD, 5 DAYS PER WEEK, 3 WEEKS MONTHLY
     Dates: start: 20110418
  3. DESFERAL [Suspect]
     Dates: start: 20110530, end: 20110603
  4. VIDAZA [Concomitant]
     Indication: MYELODYSPLASTIC SYNDROME
     Dosage: 75 MG/M2, FOR 5 DAYS EVERY 5 WEEKS
     Dates: start: 20100201, end: 20110603
  5. NOVORAPID [Concomitant]
     Dosage: 12 IU, TID
     Dates: end: 20110601
  6. DESFERAL [Suspect]
     Dates: start: 20110613
  7. LANTUS [Concomitant]
     Dosage: 56 IU, QD

REACTIONS (11)
  - ECCHYMOSIS [None]
  - ABDOMINAL PAIN [None]
  - C-REACTIVE PROTEIN INCREASED [None]
  - DIVERTICULITIS [None]
  - RENAL FAILURE [None]
  - CALCULUS URETERIC [None]
  - BLOOD UREA INCREASED [None]
  - PYREXIA [None]
  - SIGMOIDITIS [None]
  - BLOOD CREATININE INCREASED [None]
  - CHILLS [None]
